FAERS Safety Report 5160005-2 (Version None)
Quarter: 2006Q4

REPORT INFORMATION
  Report Type: 
  Country: None (occurrence: None)
  Receive Date: 20061129
  Receipt Date: 20060616
  Transmission Date: 20070319
  Serious: No
  Sender: FDA-Public Use
  Company Number: US-GLAXOSMITHKLINE-A0609520A

PATIENT
  Age: 58 Year
  Sex: Female

DRUGS (7)
  1. WELLBUTRIN SR [Suspect]
     Indication: DEPRESSION
     Dosage: 300MG PER DAY
     Route: 048
     Dates: start: 20060601
  2. BENADRYL [Suspect]
     Dosage: 25MG TWICE PER DAY
     Route: 048
     Dates: start: 20060607, end: 20060610
  3. LEXAPRO [Concomitant]
     Dates: end: 20060601
  4. NEXIUM [Concomitant]
  5. LORATADINE [Concomitant]
  6. METFORMIN [Concomitant]
  7. PREMARIN [Concomitant]

REACTIONS (2)
  - DIZZINESS [None]
  - INSOMNIA [None]
